FAERS Safety Report 18755116 (Version 1)
Quarter: 2021Q1

REPORT INFORMATION
  Report Type: Spontaneous
  Country: US (occurrence: US)
  Receive Date: 20210115
  Receipt Date: 20210115
  Transmission Date: 20210419
  Serious: Yes (Hospitalization)
  Sender: FDA-Public Use
  Company Number: None

PATIENT
  Age: 62 Year
  Sex: Female

DRUGS (1)
  1. VERZENIO [Suspect]
     Active Substance: ABEMACICLIB
     Indication: BREAST CANCER FEMALE
     Dosage: ?          OTHER DOSE:56;?
     Route: 048
     Dates: start: 202009, end: 202009

REACTIONS (4)
  - Dyspepsia [None]
  - Diarrhoea [None]
  - Vomiting [None]
  - Viral infection [None]

NARRATIVE: CASE EVENT DATE: 202009
